FAERS Safety Report 16704143 (Version 2)
Quarter: 2019Q4

REPORT INFORMATION
  Report Type: Spontaneous
  Country: GB (occurrence: GB)
  Receive Date: 20190814
  Receipt Date: 20191010
  Transmission Date: 20200122
  Serious: Yes (Other)
  Sender: FDA-Public Use
  Company Number: GB-ALLERGAN-1933039US

PATIENT
  Sex: Female

DRUGS (1)
  1. ATROPINE SULFATE 1.0% SOL (0015B) [Suspect]
     Active Substance: ATROPINE SULFATE
     Indication: EYE IRRITATION
     Dosage: PLENTY SOLUTION TWICE A DAY
     Route: 031

REACTIONS (6)
  - Headache [Unknown]
  - Ophthalmoplegia [Recovered/Resolved]
  - Prescription drug used without a prescription [Unknown]
  - Mydriasis [Recovered/Resolved]
  - Vision blurred [Not Recovered/Not Resolved]
  - Product use in unapproved indication [Unknown]
